FAERS Safety Report 5559252-7 (Version None)
Quarter: 2007Q4

REPORT INFORMATION
  Report Type: 
  Country: None (occurrence: None)
  Receive Date: 20071214
  Receipt Date: 20070925
  Transmission Date: 20080405
  Serious: No
  Sender: FDA-Public Use
  Company Number: US-ABBOTT-07P-163-0418833-00

PATIENT
  Sex: Female
  Weight: 90.9 kg

DRUGS (4)
  1. HUMIRA [Suspect]
     Indication: PSORIATIC ARTHROPATHY
     Route: 058
     Dates: start: 20060901
  2. HUMIRA [Suspect]
     Indication: PSORIASIS
  3. VITAMINS [Concomitant]
     Indication: VITAMIN SUPPLEMENTATION
     Route: 048
  4. RALOXIFENE HYDROCHLORIDE [Concomitant]
     Indication: OSTEOPENIA
     Route: 048

REACTIONS (3)
  - INJECTION SITE IRRITATION [None]
  - INJECTION SITE PAIN [None]
  - PSORIASIS [None]
